FAERS Safety Report 7868571 (Version 5)
Quarter: 2014Q4

REPORT INFORMATION
  Report Type: Spontaneous
  Country: US (occurrence: US)
  Receive Date: 20110323
  Receipt Date: 20141105
  Transmission Date: 20150529
  Serious: Yes (Hospitalization)
  Sender: FDA-Public Use
  Company Number: US-ASTRAZENECA-2011SE14067

PATIENT
  Age: 27306 Day
  Sex: Male
  Weight: 89.8 kg

DRUGS (7)
  1. PULMICORT FLEXHALER [Suspect]
     Active Substance: BUDESONIDE
     Indication: EMPHYSEMA
     Dosage: 180MCG , 2 PUFFS TWICE DAILY (TOTAL DOSAGE 360MCG)
     Route: 055
     Dates: start: 20141006
  2. AMBIEN [Concomitant]
     Active Substance: ZOLPIDEM TARTRATE
  3. OCCUVITE [Concomitant]
     Indication: EYE DISORDER
  4. SYMBICORT [Suspect]
     Active Substance: BUDESONIDE\FORMOTEROL FUMARATE DIHYDRATE
     Dosage: FREQUENCY UNKNOWN
     Route: 055
     Dates: start: 2005
  5. PULMICORT FLEXHALER [Suspect]
     Active Substance: BUDESONIDE
     Indication: EMPHYSEMA
     Dosage: 180MCG , 2 PUFFS TWICE DAILY (TOTAL DOSAGE 360MCG)
     Route: 055
  6. PULMICORT FLEXHALER [Suspect]
     Active Substance: BUDESONIDE
     Indication: ASTHMA
     Dosage: 180MCG , 2 PUFFS TWICE DAILY (TOTAL DOSAGE 360MCG)
     Route: 055
  7. PULMICORT FLEXHALER [Suspect]
     Active Substance: BUDESONIDE
     Indication: ASTHMA
     Dosage: 180MCG , 2 PUFFS TWICE DAILY (TOTAL DOSAGE 360MCG)
     Route: 055
     Dates: start: 20141006

REACTIONS (11)
  - Deafness [Not Recovered/Not Resolved]
  - Dyspnoea [Unknown]
  - Peripheral arterial occlusive disease [Recovering/Resolving]
  - Respiratory rate increased [Unknown]
  - Suffocation feeling [Unknown]
  - Off label use [Unknown]
  - Wound infection [Unknown]
  - Vertigo [Not Recovered/Not Resolved]
  - Drug dose omission [Unknown]
  - Limb discomfort [Unknown]
  - Circumstance or information capable of leading to medication error [Unknown]

NARRATIVE: CASE EVENT DATE: 201206
